FAERS Safety Report 6106427-4 (Version None)
Quarter: 2009Q1

REPORT INFORMATION
  Report Type: 
  Country: None (occurrence: None)
  Receive Date: 20090306
  Receipt Date: 20090225
  Transmission Date: 20090719
  Serious: Yes (Hospitalization, Other)
  Sender: FDA-Public Use
  Company Number: DE-ELI_LILLY_AND_COMPANY-DE200902007622

PATIENT
  Age: 58 Year
  Sex: Female
  Weight: 82 kg

DRUGS (5)
  1. GEMZAR [Suspect]
     Indication: OVARIAN CANCER METASTATIC
     Dosage: 1000 MG/M2: 75% DOSE REDUCTION FOR C2/3.50% DOSE REDUCTION FOR C5/7
     Route: 042
     Dates: start: 20081001, end: 20081203
  2. KEPPRA [Concomitant]
     Dosage: 750 MG, 2/D
  3. ERGENYL CHRONO [Concomitant]
     Dosage: 300 MG, 2/D
  4. BISOPROLOL [Concomitant]
     Dosage: 5 MG, UNK
     Route: 047
  5. ZOLPIDEM [Concomitant]
     Dosage: 5 MG, UNK
     Route: 047

REACTIONS (10)
  - ASPARTATE AMINOTRANSFERASE INCREASED [None]
  - BLOOD ALKALINE PHOSPHATASE INCREASED [None]
  - BLOOD LACTATE DEHYDROGENASE INCREASED [None]
  - GAMMA-GLUTAMYLTRANSFERASE INCREASED [None]
  - HAEMOLYTIC URAEMIC SYNDROME [None]
  - LEUKOPENIA [None]
  - PLEURAL EFFUSION [None]
  - PULMONARY CONGESTION [None]
  - RENAL FAILURE ACUTE [None]
  - URINARY TRACT INFECTION [None]
